FAERS Safety Report 17496721 (Version 1)
Quarter: 2020Q1

REPORT INFORMATION
  Report Type: Spontaneous
  Country: US (occurrence: US)
  Receive Date: 20200304
  Receipt Date: 20200304
  Transmission Date: 20200409
  Serious: No
  Sender: FDA-Public Use
  Company Number: US-SA-2020SA051919

PATIENT
  Age: 73 Year
  Sex: Male

DRUGS (6)
  1. ALIROCUMAB [Suspect]
     Active Substance: ALIROCUMAB
     Indication: BLOOD CHOLESTEROL ABNORMAL
     Dosage: 75 MG, QOW
     Dates: start: 2019
  2. CARVEDIOL [Concomitant]
     Active Substance: CARVEDILOL
     Dosage: 12.5 MG, BID
     Route: 065
  3. FISH OIL [Concomitant]
     Active Substance: FISH OIL
     Dosage: UNK
     Route: 065
  4. POTASSIUM [Concomitant]
     Active Substance: POTASSIUM
     Dosage: 20 MEQ, QD
     Route: 065
  5. FUROSEMIDE. [Concomitant]
     Active Substance: FUROSEMIDE
     Dosage: 40 MG, BID
     Route: 065
  6. LISINOPRIL. [Concomitant]
     Active Substance: LISINOPRIL
     Indication: BLOOD PRESSURE ABNORMAL
     Dosage: 40 MG, QD
     Route: 065

REACTIONS (11)
  - Insomnia [Recovered/Resolved]
  - Tissue rupture [Unknown]
  - Pain [Unknown]
  - Memory impairment [Unknown]
  - Confusional state [Unknown]
  - Abdominal discomfort [Unknown]
  - Pollakiuria [Unknown]
  - Musculoskeletal disorder [Unknown]
  - Feeling hot [Unknown]
  - Dysstasia [Unknown]
  - Inflammation [Unknown]

NARRATIVE: CASE EVENT DATE: 2019
